FAERS Safety Report 19028119 (Version 1)
Quarter: 2021Q1

REPORT INFORMATION
  Report Type: Spontaneous
  Country: FR (occurrence: FR)
  Receive Date: 20210318
  Receipt Date: 20210318
  Transmission Date: 20210420
  Serious: Yes (Death, Life-Threatening, Hospitalization, Other)
  Sender: FDA-Public Use
  Company Number: FR-CELGENEUS-FRA-20210304182

PATIENT
  Age: 78 Year
  Sex: Female
  Weight: 68 kg

DRUGS (3)
  1. LENALIDOMIDE [Suspect]
     Active Substance: LENALIDOMIDE
     Indication: PLASMA CELL MYELOMA
     Dosage: 10 MILLIGRAM
     Route: 048
     Dates: start: 20130508, end: 20130802
  2. DEXAMETHASONE. [Suspect]
     Active Substance: DEXAMETHASONE
     Indication: PLASMA CELL MYELOMA
     Dosage: 40 MILLIGRAM
     Route: 048
     Dates: start: 20130508, end: 20130731
  3. MLN9708 [Suspect]
     Active Substance: IXAZOMIB
     Indication: PLASMA CELL MYELOMA
     Route: 065
     Dates: start: 20130508, end: 20130731

REACTIONS (5)
  - Cholecystitis acute [Fatal]
  - Coma [Fatal]
  - Cerebrovascular accident [Fatal]
  - Disseminated intravascular coagulation [Recovering/Resolving]
  - Pancreatitis [Fatal]

NARRATIVE: CASE EVENT DATE: 20130806
